FAERS Safety Report 9761249 (Version 2)
Quarter: 2013Q4

REPORT INFORMATION
  Report Type: Spontaneous
  Country: FR (occurrence: None)
  Receive Date: 20131212
  Receipt Date: 20131226
  Transmission Date: 20140711
  Serious: Yes (Hospitalization)
  Sender: FDA-Public Use
  Company Number: SYM-2013-13704

PATIENT
  Age: 98 Year
  Sex: Female

DRUGS (9)
  1. DILTIAZEM HYDROCHLORIDE EXTENDED RELEASE [Suspect]
     Indication: PRODUCT USED FOR UNKNOWN INDICATION
     Route: 048
     Dates: end: 20131102
  2. HEMIGOXINE NATIVELLE [Suspect]
     Indication: PRODUCT USED FOR UNKNOWN INDICATION
     Route: 048
     Dates: end: 20131102
  3. TEMERIT [Suspect]
     Indication: PRODUCT USED FOR UNKNOWN INDICATION
     Route: 048
     Dates: end: 20131102
  4. FUROSEMIDE [Concomitant]
  5. LASILIX SPECIAL (FUROSEMIDE ) (FUROSEMIDE) [Concomitant]
  6. KALEORID (POTASSIUM CHLORIDE) (POTASSIUM CHLORIDE) [Concomitant]
  7. PREVISCAN (FLUINDIONE) (FLUINDIONE) [Concomitant]
  8. BROMAZEPAM (BROMAZEPAM) (BROMAZEPAM) [Concomitant]
  9. DALFAGAN (PRACETAMOL) (PARACETAMOL) [Concomitant]

REACTIONS (17)
  - Drug interaction [None]
  - Ventricular fibrillation [None]
  - Syncope [None]
  - Cardioactive drug level increased [None]
  - Cardiac arrest [None]
  - Loss of consciousness [None]
  - Tremor [None]
  - Eye movement disorder [None]
  - Disorientation [None]
  - Breath sounds abnormal [None]
  - Nausea [None]
  - Rales [None]
  - Bundle branch block right [None]
  - Electrocardiogram QT prolonged [None]
  - Aortic stenosis [None]
  - Left ventricular hypertrophy [None]
  - Overdose [None]
